FAERS Safety Report 5488510-X (Version None)
Quarter: 2007Q4

REPORT INFORMATION
  Report Type: 
  Country: None (occurrence: None)
  Receive Date: 20071017
  Receipt Date: 20071012
  Transmission Date: 20080405
  Serious: Yes (Other)
  Sender: FDA-Public Use
  Company Number: CA-ASTRAZENECA-2007UW23919

PATIENT
  Age: 19 Year
  Sex: Male

DRUGS (6)
  1. SEROQUEL [Suspect]
     Route: 048
  2. ATIVAN [Suspect]
  3. BUPROPION HCL [Suspect]
  4. EFFEXOR [Suspect]
  5. LORAZEPAM [Suspect]
  6. WELLBUTRIN [Suspect]

REACTIONS (2)
  - AMNESIA [None]
  - VISION BLURRED [None]
